FAERS Safety Report 21563338 (Version 1)
Quarter: 2022Q4

REPORT INFORMATION
  Report Type: Spontaneous
  Country: ES (occurrence: ES)
  Receive Date: 20221108
  Receipt Date: 20221108
  Transmission Date: 20230112
  Serious: Yes (Other)
  Sender: FDA-Public Use
  Company Number: ES-AEMPS-1277387

PATIENT
  Age: 64 Year
  Sex: Female

DRUGS (7)
  1. PREGABALIN [Suspect]
     Active Substance: PREGABALIN
     Indication: Pain
     Dosage: 225 MILLIGRAM, DAILY
     Route: 048
     Dates: start: 20220822, end: 20220825
  2. MORPHINE [Suspect]
     Active Substance: MORPHINE
     Indication: Pain
     Dosage: 3 MILLIGRAM, DAILY
     Route: 058
     Dates: start: 20220816, end: 20220825
  3. BUPRENORPHINE [Concomitant]
     Active Substance: BUPRENORPHINE
     Indication: Pain
     Dosage: 10 MILLIGRAM, TID
     Route: 062
     Dates: start: 20220816
  4. AMITRIPTYLINE [Concomitant]
     Active Substance: AMITRIPTYLINE
     Indication: Pain
     Dosage: 25 MILLIGRAM, DAILY
     Route: 048
     Dates: start: 20220816
  5. TRAZODONE HYDROCHLORIDE [Concomitant]
     Active Substance: TRAZODONE HYDROCHLORIDE
     Indication: Pain
     Dosage: 50 MILLIGRAM, DAILY
     Route: 048
     Dates: start: 20220818
  6. CLOMETHIAZOLE [Concomitant]
     Active Substance: CLOMETHIAZOLE
     Indication: Pain
     Dosage: UNK
     Route: 048
     Dates: start: 20220818
  7. PREGABALIN [Concomitant]
     Active Substance: PREGABALIN
     Indication: Pain
     Dosage: 150 MILLIGRAM, DAILY
     Route: 048
     Dates: start: 20220816, end: 20220822

REACTIONS (1)
  - Tremor [Recovered/Resolved]

NARRATIVE: CASE EVENT DATE: 20220822
